FAERS Safety Report 7580749-2 (Version None)
Quarter: 2011Q2

REPORT INFORMATION
  Report Type: 
  Country: None (occurrence: None)
  Receive Date: 20110629
  Receipt Date: 20110623
  Transmission Date: 20111010
  Serious: Yes (Other)
  Sender: FDA-Public Use
  Company Number: US-PFIZER INC-2010006245

PATIENT
  Sex: Female

DRUGS (3)
  1. POTASSIUM [Concomitant]
     Dosage: UNK
  2. LIPITOR [Suspect]
     Dosage: UNK
  3. NORVASC [Suspect]
     Dosage: 5 MG, UNK
     Dates: start: 20090101

REACTIONS (8)
  - GAIT DISTURBANCE [None]
  - DEAFNESS [None]
  - CYSTITIS [None]
  - OROPHARYNGEAL PAIN [None]
  - PAIN IN EXTREMITY [None]
  - HEAD INJURY [None]
  - WEIGHT INCREASED [None]
  - DIZZINESS [None]
